FAERS Safety Report 15751391 (Version 5)
Quarter: 2019Q1

REPORT INFORMATION
  Report Type: Spontaneous
  Country: CN (occurrence: CN)
  Receive Date: 20181221
  Receipt Date: 20190222
  Transmission Date: 20190417
  Serious: Yes (Death, Hospitalization, Other)
  Sender: FDA-Public Use
  Company Number: CN-GLAXOSMITHKLINE-CN2018GSK229490

PATIENT
  Age: 50 Year
  Sex: Male

DRUGS (3)
  1. VALPROATE SODIUM. [Suspect]
     Active Substance: VALPROATE SODIUM
     Indication: PRODUCT USED FOR UNKNOWN INDICATION
     Dosage: UNK
     Route: 048
  2. OXCARBAZEPINE. [Suspect]
     Active Substance: OXCARBAZEPINE
     Indication: PRODUCT USED FOR UNKNOWN INDICATION
     Dosage: UNK
     Route: 048
  3. LAMICTAL [Suspect]
     Active Substance: LAMOTRIGINE
     Indication: PRODUCT USED FOR UNKNOWN INDICATION
     Dosage: UNK
     Route: 048
     Dates: start: 201808

REACTIONS (22)
  - Pyrexia [Fatal]
  - Bone marrow failure [Fatal]
  - Ascites [Fatal]
  - Rash [Fatal]
  - Face oedema [Fatal]
  - Blood bilirubin increased [Fatal]
  - Oedema peripheral [Fatal]
  - Thrombocytopenia [Fatal]
  - Pancytopenia [Fatal]
  - Hepatic function abnormal [Fatal]
  - Hypersensitivity [Fatal]
  - Full blood count decreased [Fatal]
  - Transaminases increased [Fatal]
  - Protein total decreased [Fatal]
  - Decreased appetite [Fatal]
  - Hospitalisation [Fatal]
  - Asthenia [Fatal]
  - Blood count abnormal [Fatal]
  - Infection [Fatal]
  - Anaemia [Fatal]
  - Hydrothorax [Fatal]
  - Immune system disorder [Fatal]
